FAERS Safety Report 6341473-7 (Version None)
Quarter: 2009Q3

REPORT INFORMATION
  Report Type: 
  Country: None (occurrence: None)
  Receive Date: 20090902
  Receipt Date: 20090902
  Transmission Date: 20100115
  Serious: No
  Sender: FDA-Public Use
  Company Number: None

PATIENT

DRUGS (1)
  1. LEVAQUIN [Suspect]
     Dosage: 500  MG AND 750MG

REACTIONS (7)
  - BURNING SENSATION [None]
  - DRY MOUTH [None]
  - EYE IRRITATION [None]
  - RASH [None]
  - SINUSITIS [None]
  - SKIN BURNING SENSATION [None]
  - SLEEP DISORDER [None]
